FAERS Safety Report 10927893 (Version 1)
Quarter: 2015Q1

REPORT INFORMATION
  Report Type: Spontaneous
  Country: US (occurrence: US)
  Receive Date: 20150319
  Receipt Date: 20150319
  Transmission Date: 20150721
  Serious: No
  Sender: FDA-Public Use
  Company Number: US-BRISTOL-MYERS SQUIBB COMPANY-BMS-2015-015345

PATIENT
  Sex: Female
  Weight: 117.9 kg

DRUGS (1)
  1. ORENCIA [Suspect]
     Active Substance: ABATACEPT
     Indication: RHEUMATOID ARTHRITIS
     Dosage: 125 MG, UNK
     Route: 058
     Dates: start: 201406

REACTIONS (6)
  - Malaise [Unknown]
  - Musculoskeletal pain [Unknown]
  - Drug administration error [Unknown]
  - Arthralgia [Unknown]
  - Injection site reaction [Unknown]
  - Product quality issue [Unknown]
